FAERS Safety Report 9304566 (Version 8)
Quarter: 2014Q2

REPORT INFORMATION
  Report Type: Report from Study
  Country: CA (occurrence: CA)
  Receive Date: 20130523
  Receipt Date: 20140408
  Transmission Date: 20141212
  Serious: Yes (Other)
  Sender: FDA-Public Use
  Company Number: CA-ROCHE-1156681

PATIENT
  Age: 69 Year
  Sex: Female
  Weight: 82 kg

DRUGS (23)
  1. ACTEMRA [Suspect]
     Indication: RHEUMATOID ARTHRITIS
     Dosage: EVERY 4 WEEKS
     Route: 042
     Dates: start: 20130509
  2. ACTEMRA [Suspect]
     Dosage: EVERY 4 WEEKS
     Route: 042
     Dates: start: 20120813
  3. ACTEMRA [Suspect]
     Route: 042
     Dates: start: 20130607
  4. ACTEMRA [Suspect]
     Route: 042
     Dates: start: 20130702
  5. ACTEMRA [Suspect]
     Route: 042
     Dates: start: 20131003
  6. NAPROXEN [Suspect]
     Indication: PRODUCT USED FOR UNKNOWN INDICATION
     Route: 065
  7. RITUXAN [Suspect]
     Indication: RHEUMATOID ARTHRITIS
     Route: 042
     Dates: start: 20110510, end: 20110510
  8. SYNTHROID [Concomitant]
  9. COZAAR [Concomitant]
  10. PREMARIN [Concomitant]
  11. VOLTAREN [Concomitant]
  12. SINGULAIR [Concomitant]
  13. ACTONEL [Concomitant]
  14. ADVAIR [Concomitant]
  15. VENTOLIN [Concomitant]
  16. CIMZIA [Concomitant]
     Route: 065
     Dates: end: 20120602
  17. ADVIL [Concomitant]
     Route: 065
     Dates: end: 20120602
  18. ADVIL [Concomitant]
     Route: 065
     Dates: start: 20110510, end: 20110510
  19. REACTINE (CANADA) [Concomitant]
     Route: 048
     Dates: start: 20110510, end: 20110510
  20. REACTINE (CANADA) [Concomitant]
     Route: 048
     Dates: start: 20130510, end: 20130510
  21. SOLU-CORTEF [Concomitant]
     Route: 042
     Dates: start: 20110510, end: 20110510
  22. SOLU-CORTEF [Concomitant]
     Route: 042
     Dates: start: 20130510, end: 20130510
  23. CORTISONE [Concomitant]
     Route: 065
     Dates: start: 20140319

REACTIONS (12)
  - Latent tuberculosis [Unknown]
  - Rheumatoid arthritis [Not Recovered/Not Resolved]
  - Osteoarthritis [Unknown]
  - Bronchitis [Recovered/Resolved]
  - Infection [Unknown]
  - Joint swelling [Not Recovered/Not Resolved]
  - Cough [Unknown]
  - Rash [Unknown]
  - Pain [Unknown]
  - Fatigue [Unknown]
  - Weight fluctuation [Unknown]
  - Urticaria [Not Recovered/Not Resolved]
